FAERS Safety Report 5408722-0 (Version None)
Quarter: 2007Q3

REPORT INFORMATION
  Report Type: 
  Country: None (occurrence: None)
  Receive Date: 20070808
  Receipt Date: 20070803
  Transmission Date: 20080115
  Serious: Yes (Hospitalization)
  Sender: FDA-Public Use
  Company Number: A0668733A

PATIENT
  Sex: Female
  Weight: 62 kg

DRUGS (9)
  1. SERETIDE [Suspect]
     Indication: RHINITIS ALLERGIC
     Route: 055
     Dates: start: 20030101
  2. ANTIHYPERTENSIVE [Suspect]
     Indication: HYPERTENSION
  3. PREDNISOLONE [Concomitant]
     Dates: start: 20070501
  4. FLIXONASE [Concomitant]
     Dates: start: 20040101
  5. BEROTEC [Concomitant]
     Dates: start: 19920101
  6. ATROVENT [Concomitant]
     Dates: start: 19920101
  7. OMEPRAZOLE [Concomitant]
     Dates: start: 20070701
  8. BRONDILAT [Concomitant]
     Route: 048
     Dates: start: 20070730
  9. PRESSAT [Concomitant]
     Dates: start: 20070201

REACTIONS (5)
  - DRUG INEFFECTIVE [None]
  - DRY MOUTH [None]
  - GASTROOESOPHAGEAL REFLUX DISEASE [None]
  - HYPERTENSION [None]
  - SURGERY [None]
